FAERS Safety Report 8962655 (Version 2)
Quarter: 2013Q1

REPORT INFORMATION
  Report Type: Report from Study
  Country: BR (occurrence: BR)
  Receive Date: 20121213
  Receipt Date: 20130221
  Transmission Date: 20140127
  Serious: Yes (Hospitalization, Other)
  Sender: FDA-Public Use
  Company Number: BR-ABBOTT-12P-020-1020184-00

PATIENT
  Age: 45 Year
  Sex: Female
  Weight: 87 kg

DRUGS (10)
  1. HUMIRA [Suspect]
     Indication: RHEUMATOID ARTHRITIS
     Route: 058
     Dates: start: 20120604, end: 20121029
  2. HUMIRA [Suspect]
  3. ARAVA [Concomitant]
     Indication: ARTHRITIS
     Route: 048
     Dates: start: 2010
  4. CORTISONE [Concomitant]
     Indication: RHEUMATIC DISORDER
     Dosage: 10 MG DAILY
     Route: 048
     Dates: start: 2006
  5. TYLEX [Concomitant]
     Indication: PAIN
     Dosage: IF NEEDED
     Route: 048
  6. CAPTOPRIL [Concomitant]
     Indication: HYPERTENSION
     Dosage: 50 MG DAILY
     Route: 048
     Dates: start: 201206
  7. PREDNISONE [Concomitant]
     Indication: PRODUCT USED FOR UNKNOWN INDICATION
  8. LEFLUNOMIDE [Concomitant]
     Indication: PRODUCT USED FOR UNKNOWN INDICATION
  9. CALCIUM [Concomitant]
     Indication: PRODUCT USED FOR UNKNOWN INDICATION
  10. VITAMIN D3 [Concomitant]
     Indication: PRODUCT USED FOR UNKNOWN INDICATION

REACTIONS (6)
  - Pulmonary thrombosis [Recovered/Resolved]
  - Fungaemia [Recovered/Resolved]
  - Cardiac tamponade [Unknown]
  - Cardiac failure [Unknown]
  - Candiduria [Recovered/Resolved]
  - Systemic candida [Recovered/Resolved]
